FAERS Safety Report 4571618-0 (Version None)
Quarter: 2005Q1

REPORT INFORMATION
  Report Type: 
  Country: None (occurrence: None)
  Receive Date: 20050203
  Receipt Date: 20050203
  Transmission Date: 20050727
  Serious: No
  Sender: FDA-Public Use
  Company Number: None

PATIENT
  Age: 49 Year
  Sex: Male
  Weight: 131.0895 kg

DRUGS (2)
  1. ZESTRIL [Suspect]
     Indication: CORONARY ARTERY DISEASE
     Dosage: 20 MG BID [LONG STANDING]
  2. NIZORAL [Suspect]
     Indication: SEBORRHOEA
     Dosage: 2%   3X / WK

REACTIONS (2)
  - ADVERSE EVENT [None]
  - DIABETES MELLITUS NON-INSULIN-DEPENDENT [None]
